FAERS Safety Report 12086364 (Version 1)
Quarter: 2016Q1

REPORT INFORMATION
  Report Type: Spontaneous
  Country: US (occurrence: US)
  Receive Date: 20160217
  Receipt Date: 20160217
  Transmission Date: 20160526
  Serious: No
  Sender: FDA-Public Use
  Company Number: US-ALLERGAN-1510297US

PATIENT
  Age: 67 Year
  Sex: Female

DRUGS (1)
  1. RESTASIS [Suspect]
     Active Substance: CYCLOSPORINE
     Indication: DRY EYE

REACTIONS (6)
  - Dry eye [Unknown]
  - Bronchitis [Unknown]
  - Off label use [Unknown]
  - Eye colour change [Unknown]
  - Aptyalism [Unknown]
  - Vision blurred [Unknown]

NARRATIVE: CASE EVENT DATE: 201501
